FAERS Safety Report 10965551 (Version 1)
Quarter: 2015Q1

REPORT INFORMATION
  Report Type: Spontaneous
  Country: CN (occurrence: CN)
  Receive Date: 20150330
  Receipt Date: 20150330
  Transmission Date: 20150721
  Serious: Yes (Other)
  Sender: FDA-Public Use
  Company Number: CN-JNJFOC-20150311549

PATIENT
  Age: 68 Year
  Sex: Female

DRUGS (2)
  1. DURAGESIC [Suspect]
     Active Substance: FENTANYL
     Indication: CANCER PAIN
     Route: 062
     Dates: start: 20150312
  2. DURAGESIC [Suspect]
     Active Substance: FENTANYL
     Indication: CANCER PAIN
     Dosage: 8.4MG*5
     Route: 062
     Dates: start: 20150310, end: 20150310

REACTIONS (4)
  - Hypertension [Recovered/Resolved]
  - Wrong technique in drug usage process [Unknown]
  - Vertigo [Recovering/Resolving]
  - Vomiting [Recovering/Resolving]

NARRATIVE: CASE EVENT DATE: 20150310
